FAERS Safety Report 11893396 (Version 1)
Quarter: 2016Q1

REPORT INFORMATION
  Report Type: Spontaneous
  Country: US (occurrence: US)
  Receive Date: 20160106
  Receipt Date: 20160106
  Transmission Date: 20160526
  Serious: Yes (Hospitalization, Other)
  Sender: FDA-Public Use
  Company Number: US-B.I. PHARMACEUTICALS,INC./RIDGEFIELD-2016-BI-00261BP

PATIENT
  Sex: Female

DRUGS (1)
  1. MICARDIS [Suspect]
     Active Substance: TELMISARTAN
     Indication: HYPERTENSION
     Dosage: 40 MG
     Route: 048
     Dates: start: 2010, end: 201506

REACTIONS (9)
  - Chest pain [Recovered/Resolved]
  - Pain [Not Recovered/Not Resolved]
  - Rosacea [Recovered/Resolved]
  - Cataract [Not Recovered/Not Resolved]
  - Alopecia [Not Recovered/Not Resolved]
  - Oesophageal stenosis [Recovered/Resolved]
  - Macular degeneration [Not Recovered/Not Resolved]
  - Madarosis [Not Recovered/Not Resolved]
  - Muscle spasms [Not Recovered/Not Resolved]

NARRATIVE: CASE EVENT DATE: 2010
